FAERS Safety Report 8702653 (Version 2)
Quarter: 2012Q4

REPORT INFORMATION
  Report Type: 
  Country: FR (occurrence: FR)
  Receive Date: 20120803
  Receipt Date: 20120904
  Transmission Date: 20130627
  Serious: Yes (Congenital Anomaly)
  Sender: FDA-Public Use
  Company Number: FR-GLAXOSMITHKLINE-B0818625A

PATIENT
  Age: 0 Year

DRUGS (3)
  1. LAMICTAL [Suspect]
     Indication: PRODUCT USED FOR UNKNOWN INDICATION
     Dosage: 25MG Twice per day
     Route: 064
     Dates: start: 20110711, end: 20120406
  2. DEPAKINE [Suspect]
     Indication: PRODUCT USED FOR UNKNOWN INDICATION
     Dosage: 500MG Twice per day
     Route: 064
     Dates: start: 20110711, end: 201202
  3. KEPPRA [Suspect]
     Indication: PRODUCT USED FOR UNKNOWN INDICATION
     Dosage: 250MG Per day
     Route: 064
     Dates: start: 20110711, end: 20120406

REACTIONS (5)
  - Multiple congenital abnormalities [Not Recovered/Not Resolved]
  - Congenital renal cyst [Recovered/Resolved with Sequelae]
  - Retrognathia [Unknown]
  - Clubbing [Unknown]
  - Foetal exposure during pregnancy [Unknown]
